FAERS Safety Report 18458074 (Version 1)
Quarter: 2020Q4

REPORT INFORMATION
  Report Type: Spontaneous
  Country: US (occurrence: US)
  Receive Date: 20201103
  Receipt Date: 20201103
  Transmission Date: 20210114
  Serious: No
  Sender: FDA-Public Use
  Company Number: US-FARMAPROD-202009-1202

PATIENT
  Age: 60 Year
  Sex: Female

DRUGS (5)
  1. METHOTREXATE. [Concomitant]
     Active Substance: METHOTREXATE
  2. LEVOTHYROXINE SODIUM. [Concomitant]
     Active Substance: LEVOTHYROXINE SODIUM
  3. OXERVATE [Suspect]
     Active Substance: CENEGERMIN-BKBJ
     Indication: NEUROTROPHIC KERATOPATHY
     Route: 047
     Dates: start: 20200901
  4. OFLOXACIN. [Concomitant]
     Active Substance: OFLOXACIN
  5. GENTEAL MILD [Concomitant]
     Active Substance: HYPROMELLOSE 2910 (4000 MPA.S)
     Dosage: AT NIGHT

REACTIONS (8)
  - Eyelid irritation [Unknown]
  - Eye irritation [Unknown]
  - Photophobia [Unknown]
  - Eye pain [Unknown]
  - Eyelid pain [Unknown]
  - Eye pain [Unknown]
  - Eyelid irritation [Unknown]
  - Periorbital swelling [Unknown]

NARRATIVE: CASE EVENT DATE: 202009
